FAERS Safety Report 14904992 (Version 1)
Quarter: 2018Q2

REPORT INFORMATION
  Report Type: Spontaneous
  Country: US (occurrence: US)
  Receive Date: 20180517
  Receipt Date: 20180517
  Transmission Date: 20180711
  Serious: No
  Sender: FDA-Public Use
  Company Number: US-SA-2017SA218198

PATIENT
  Age: 78 Year
  Sex: Male
  Weight: 77.11 kg

DRUGS (9)
  1. LORAZEPAM. [Concomitant]
     Active Substance: LORAZEPAM
     Indication: SLEEP DISORDER
     Dosage: STRENGTH: 1 MG
     Route: 065
     Dates: start: 20170302
  2. SOTALOL. [Concomitant]
     Active Substance: SOTALOL
     Indication: ARRHYTHMIA
     Route: 065
     Dates: start: 20170423
  3. ASPIRIN. [Concomitant]
     Active Substance: ASPIRIN
     Indication: ARRHYTHMIA
     Route: 065
     Dates: start: 2015
  4. SOLOSTAR [Suspect]
     Active Substance: DEVICE
     Indication: TYPE 2 DIABETES MELLITUS
  5. LANTUS SOLOSTAR [Suspect]
     Active Substance: INSULIN GLARGINE
     Indication: TYPE 2 DIABETES MELLITUS
     Dosage: DOSE:21 UNIT(S)
     Route: 051
     Dates: start: 20170503
  6. SOLOSTAR [Suspect]
     Active Substance: DEVICE
     Indication: TYPE 2 DIABETES MELLITUS
     Dates: start: 20170503
  7. METOPROLOL. [Concomitant]
     Active Substance: METOPROLOL
     Indication: BLOOD PRESSURE MEASUREMENT
     Dosage: STRENGTH:50 MG
     Route: 065
     Dates: start: 20170227
  8. LANTUS SOLOSTAR [Suspect]
     Active Substance: INSULIN GLARGINE
     Indication: TYPE 2 DIABETES MELLITUS
     Route: 051
  9. ELIQUIS [Concomitant]
     Active Substance: APIXABAN
     Indication: ARRHYTHMIA
     Route: 065
     Dates: start: 20170224

REACTIONS (3)
  - Drug ineffective [Unknown]
  - Blood glucose increased [Unknown]
  - Blood glucose increased [Recovered/Resolved]

NARRATIVE: CASE EVENT DATE: 20171028
